FAERS Safety Report 18879289 (Version 1)
Quarter: 2021Q1

REPORT INFORMATION
  Report Type: Spontaneous
  Country: US (occurrence: US)
  Receive Date: 20210211
  Receipt Date: 20210211
  Transmission Date: 20210420
  Serious: Yes (Other)
  Sender: FDA-Public Use
  Company Number: None

PATIENT
  Age: 72 Year
  Sex: Female
  Weight: 126.45 kg

DRUGS (20)
  1. EZETIMIBE. [Suspect]
     Active Substance: EZETIMIBE
     Indication: BLOOD CHOLESTEROL
     Route: 048
     Dates: start: 20201024, end: 20210123
  2. POTASSIUM [Concomitant]
     Active Substance: POTASSIUM
  3. BIOTIN [Concomitant]
     Active Substance: BIOTIN
  4. BUMETANIDE. [Concomitant]
     Active Substance: BUMETANIDE
  5. CPAP [Concomitant]
     Active Substance: DEVICE
  6. OXYGEN. [Concomitant]
     Active Substance: OXYGEN
  7. IRBESARTAN. [Concomitant]
     Active Substance: IRBESARTAN
  8. LYMPHEDEMA PUMP [Concomitant]
  9. MVI W/MINERALS [Concomitant]
  10. KRILL OIL [Concomitant]
     Active Substance: DIETARY SUPPLEMENT\KRILL OIL
  11. LEVOTHYROXINE. [Concomitant]
     Active Substance: LEVOTHYROXINE
  12. METROPOLAL [Concomitant]
  13. RABEPRAZOLE [Concomitant]
     Active Substance: RABEPRAZOLE
  14. MONTELUKAST [Concomitant]
     Active Substance: MONTELUKAST SODIUM
  15. VIT D [Concomitant]
     Active Substance: VITAMIN D NOS
  16. VITAMIN C [Concomitant]
     Active Substance: ASCORBIC ACID
  17. VAGIFEM [Concomitant]
     Active Substance: ESTRADIOL
  18. NEBULIZER MACHINE [Concomitant]
  19. HYDROCORDONE [Concomitant]
     Active Substance: HYDROCODONE
  20. MILK THISTLE [Concomitant]
     Active Substance: DIETARY SUPPLEMENT\HERBALS\MILK THISTLE

REACTIONS (15)
  - Decreased appetite [None]
  - Chills [None]
  - Nasal congestion [None]
  - Back pain [None]
  - Dysphagia [None]
  - Asthenia [None]
  - Diverticulum gastric [None]
  - Pain [None]
  - Dry throat [None]
  - Arthralgia [None]
  - Chest discomfort [None]
  - Dyspnoea [None]
  - Dyspepsia [None]
  - Rhinorrhoea [None]
  - Fatigue [None]

NARRATIVE: CASE EVENT DATE: 20210120
